FAERS Safety Report 11695776 (Version 1)
Quarter: 2015Q4

REPORT INFORMATION
  Report Type: Spontaneous
  Country: US (occurrence: None)
  Receive Date: 20151103
  Receipt Date: 20151103
  Transmission Date: 20160304
  Serious: No
  Sender: FDA-Public Use
  Company Number: None

PATIENT
  Age: 37 Year
  Sex: Female
  Weight: 113.4 kg

DRUGS (13)
  1. QUETIAPINE FUMARATE. [Concomitant]
     Active Substance: QUETIAPINE FUMARATE
  2. PRO AIR (INHALER) [Concomitant]
  3. RITALIN [Concomitant]
     Active Substance: METHYLPHENIDATE HYDROCHLORIDE
  4. HAIR, SKIN, AND NAILS GUMMY VITAMINS [Concomitant]
  5. MONTELUKAST SODIUM. [Concomitant]
     Active Substance: MONTELUKAST SODIUM
  6. ADVIL [Concomitant]
     Active Substance: IBUPROFEN
  7. QUETIAPINE [Suspect]
     Active Substance: QUETIAPINE
     Indication: BIPOLAR DISORDER
     Route: 048
     Dates: start: 20151019, end: 20151102
  8. CLARITIN [Concomitant]
     Active Substance: LORATADINE
  9. QUETIAPINE [Suspect]
     Active Substance: QUETIAPINE
     Indication: INSOMNIA
     Route: 048
     Dates: start: 20151019, end: 20151102
  10. LAMICTAL [Concomitant]
     Active Substance: LAMOTRIGINE
  11. ORTHO TRI-CPCLEN LO [Concomitant]
  12. LEVOCETIRIZINE [Concomitant]
     Active Substance: LEVOCETIRIZINE
  13. ZIPSOR [Concomitant]
     Active Substance: DICLOFENAC POTASSIUM

REACTIONS (16)
  - Eructation [None]
  - Pollakiuria [None]
  - Chills [None]
  - Hyperhidrosis [None]
  - Restless legs syndrome [None]
  - Initial insomnia [None]
  - Gastrooesophageal reflux disease [None]
  - Gout [None]
  - Somnambulism [None]
  - Hypoaesthesia [None]
  - Hot flush [None]
  - Fatigue [None]
  - Dyspepsia [None]
  - Depression [None]
  - Paraesthesia [None]
  - Somnolence [None]

NARRATIVE: CASE EVENT DATE: 20151024
